FAERS Safety Report 9857601 (Version 2)
Quarter: 2014Q2

REPORT INFORMATION
  Report Type: Spontaneous
  Country: AR (occurrence: AR)
  Receive Date: 20140131
  Receipt Date: 20140402
  Transmission Date: 20141212
  Serious: Yes (Other)
  Sender: FDA-Public Use
  Company Number: AR-AMGEN-ARGSP2014006595

PATIENT
  Age: 75 Year
  Sex: Female

DRUGS (5)
  1. ENBREL [Suspect]
     Indication: PSORIATIC ARTHROPATHY
     Dosage: 50 MG, WEEKLY
     Route: 058
     Dates: end: 2011
  2. ENBREL [Suspect]
     Dosage: 50 MG, EVERY 10 DAYS
     Route: 065
     Dates: start: 201306
  3. ENBREL [Suspect]
     Dosage: 50 MG, QWK
     Route: 065
  4. METHOTREXATE                       /00113802/ [Suspect]
     Indication: PRODUCT USED FOR UNKNOWN INDICATION
     Dosage: 10 MG, WEEKLY
     Route: 065
  5. LEFLUNOMIDE [Concomitant]
     Dosage: UNK, SCHEME 5X2
     Dates: start: 201311

REACTIONS (4)
  - Poisoning [Recovered/Resolved]
  - Condition aggravated [Recovered/Resolved]
  - Tinnitus [Not Recovered/Not Resolved]
  - Infection [Recovered/Resolved]
